FAERS Safety Report 7116279-1 (Version None)
Quarter: 2010Q4

REPORT INFORMATION
  Report Type: 
  Country: None (occurrence: None)
  Receive Date: 20101115
  Receipt Date: 20101028
  Transmission Date: 20110411
  Serious: Yes (Hospitalization, Other)
  Sender: FDA-Public Use
  Company Number: JPI-P-012789

PATIENT
  Age: 75 Year
  Sex: Female

DRUGS (3)
  1. XYREM [Suspect]
     Indication: APNOEA
     Dosage: 9 GM (4.5 GM,2 IN 1 D) ,ORAL
     Route: 048
     Dates: start: 20090707
  2. XYREM [Suspect]
     Indication: FIBROMYALGIA
     Dosage: 9 GM (4.5 GM,2 IN 1 D) ,ORAL
     Route: 048
     Dates: start: 20090707
  3. XYREM [Suspect]
     Indication: SLEEP DISORDER
     Dosage: 9 GM (4.5 GM,2 IN 1 D) ,ORAL
     Route: 048
     Dates: start: 20090707

REACTIONS (8)
  - AGITATION [None]
  - ASTHENIA [None]
  - DYSTONIA [None]
  - FALL [None]
  - HALLUCINATION [None]
  - HERNIA [None]
  - HYPOXIA [None]
  - VOLVULUS [None]
